FAERS Safety Report 5502893-3 (Version None)
Quarter: 2007Q4

REPORT INFORMATION
  Report Type: 
  Country: None (occurrence: None)
  Receive Date: 20071031
  Receipt Date: 20071024
  Transmission Date: 20080405
  Serious: Yes (Other)
  Sender: FDA-Public Use
  Company Number: US-WYE-H00877507

PATIENT
  Age: 69 Year
  Sex: Female

DRUGS (2)
  1. ADVIL PM [Suspect]
     Indication: INSOMNIA
     Dosage: 1 CAPLET EVERY EVENING
     Route: 048
     Dates: end: 20071022
  2. PAXIL [Concomitant]
     Indication: ANXIETY
     Dosage: UNKNOWN
     Route: 048

REACTIONS (3)
  - DEPENDENCE [None]
  - DRUG WITHDRAWAL SYNDROME [None]
  - INSOMNIA [None]
